FAERS Safety Report 4286355-X (Version None)
Quarter: 2004Q1

REPORT INFORMATION
  Report Type: 
  Country: None (occurrence: None)
  Receive Date: 20040121
  Receipt Date: 20030224
  Transmission Date: 20041129
  Serious: Yes (Hospitalization)
  Sender: FDA-Public Use
  Company Number: A03200300378

PATIENT
  Age: 61 Year
  Sex: Male
  Weight: 95.2554 kg

DRUGS (9)
  1. PLAVIX [Suspect]
     Indication: STENT PLACEMENT
     Dosage: 75 MG QD - ORAL
     Route: 048
     Dates: start: 20020601, end: 20020813
  2. VALSARTAN [Concomitant]
  3. LANSOPRAZOLE [Concomitant]
  4. EZETIMIBE [Concomitant]
  5. ATENOLOL [Concomitant]
  6. CELECOXIB [Concomitant]
  7. TERAZOSIN HCL [Concomitant]
  8. METFORMIN HCL [Concomitant]
  9. ACETYLSALICYLIC ACID SRT [Concomitant]

REACTIONS (1)
  - POST PROCEDURAL HAEMORRHAGE [None]
